FAERS Safety Report 4750501-1 (Version None)
Quarter: 2005Q3

REPORT INFORMATION
  Report Type: 
  Country: None (occurrence: None)
  Receive Date: 20050819
  Receipt Date: 20050802
  Transmission Date: 20060218
  Serious: Yes (Death, Other)
  Sender: FDA-Public Use
  Company Number: WAES 0508USA01364

PATIENT
  Sex: Female

DRUGS (1)
  1. INDOCIN I.V. [Suspect]
     Indication: PROPHYLAXIS
     Route: 042

REACTIONS (6)
  - INTRAVENTRICULAR HAEMORRHAGE NEONATAL [None]
  - METABOLIC ACIDOSIS [None]
  - NEONATAL DISORDER [None]
  - OLIGURIA [None]
  - PNEUMOTHORAX [None]
  - PULMONARY HAEMORRHAGE [None]
